FAERS Safety Report 6910413-1 (Version None)
Quarter: 2010Q3

REPORT INFORMATION
  Report Type: 
  Country: None (occurrence: None)
  Receive Date: 20100806
  Receipt Date: 20100726
  Transmission Date: 20110219
  Serious: Yes (Other)
  Sender: FDA-Public Use
  Company Number: US-PFIZER INC-2010093670

PATIENT
  Sex: Female
  Weight: 64.853 kg

DRUGS (2)
  1. NEURONTIN [Suspect]
     Indication: NEUROPATHY PERIPHERAL
     Dosage: UNK
     Route: 048
     Dates: start: 19920101
  2. LYRICA [Suspect]
     Indication: NEUROPATHY PERIPHERAL
     Dosage: UNK
     Route: 048

REACTIONS (5)
  - BONE PAIN [None]
  - CATARACT [None]
  - HERPES ZOSTER [None]
  - OPTIC NERVE DISORDER [None]
  - POST HERPETIC NEURALGIA [None]
